FAERS Safety Report 18018040 (Version 2)
Quarter: 2020Q3

REPORT INFORMATION
  Report Type: Spontaneous
  Country: AU (occurrence: AU)
  Receive Date: 20200713
  Receipt Date: 20200715
  Transmission Date: 20201103
  Serious: No
  Sender: FDA-Public Use
  Company Number: AU-IPSEN BIOPHARMACEUTICALS, INC.-2020-12035

PATIENT
  Sex: Female

DRUGS (2)
  1. BOTULINUM TOXIN TYPE A [Suspect]
     Active Substance: BOTULINUM TOXIN TYPE A
     Indication: OFF LABEL USE
  2. BOTULINUM TOXIN TYPE A [Suspect]
     Active Substance: BOTULINUM TOXIN TYPE A
     Indication: URINARY INCONTINENCE
     Dosage: INITIALLY WITH 100 UNITS AND SUBSEQUENTLY WITH DOSE REDUCTION TO 55 UNITS.
     Route: 043

REACTIONS (3)
  - Urinary retention [Unknown]
  - Off label use [Unknown]
  - Drug effective for unapproved indication [Unknown]
